FAERS Safety Report 18620759 (Version 7)
Quarter: 2023Q1

REPORT INFORMATION
  Report Type: Report from Study
  Country: KR (occurrence: KR)
  Receive Date: 20201216
  Receipt Date: 20230223
  Transmission Date: 20230417
  Serious: Yes (Hospitalization)
  Sender: FDA-Public Use
  Company Number: KR-CELLTRION INC.-2020KR033705

PATIENT

DRUGS (19)
  1. HERZUMA [Suspect]
     Active Substance: TRASTUZUMAB-PKRB
     Indication: Gallbladder cancer
     Dosage: 6 MILLIGRAM/KILOGRAM (436 ML)
     Route: 042
     Dates: start: 20201201, end: 20201203
  2. HERZUMA [Suspect]
     Active Substance: TRASTUZUMAB-PKRB
     Dosage: 290 MG (4MG/KG)
     Route: 042
     Dates: start: 20201218, end: 20201220
  3. HERZUMA [Suspect]
     Active Substance: TRASTUZUMAB-PKRB
     Dosage: 250MG(4MG/KG)
     Route: 042
     Dates: start: 20210108, end: 20210108
  4. OXALIPLATIN [Suspect]
     Active Substance: OXALIPLATIN
     Indication: Gallbladder cancer
     Dosage: 85 MG/M2 (158ML)
     Dates: start: 20201201, end: 20201201
  5. OXALIPLATIN [Suspect]
     Active Substance: OXALIPLATIN
     Dosage: 158 MG (85 MG/M2)
     Dates: start: 20201218, end: 20201220
  6. OXALIPLATIN [Suspect]
     Active Substance: OXALIPLATIN
     Dosage: 112MG(65MG/M2)
     Dates: start: 20210108, end: 20210110
  7. LEUCOVORIN [Suspect]
     Active Substance: LEUCOVORIN
     Indication: Gallbladder cancer
     Dosage: 200 MG/M2 (374ML)
     Dates: start: 20201201, end: 20201201
  8. LEUCOVORIN [Suspect]
     Active Substance: LEUCOVORIN
     Dosage: 374 MG (200 MG/M2)
     Dates: start: 20201218, end: 20201220
  9. LEUCOVORIN [Suspect]
     Active Substance: LEUCOVORIN
     Dosage: 346MG(200MG/M2)
     Dates: start: 20210108, end: 20210110
  10. FLUOROURACIL [Suspect]
     Active Substance: FLUOROURACIL
     Indication: Gallbladder cancer
     Dosage: 400 MG/M2 (244ML)
     Dates: start: 20201201, end: 20201201
  11. FLUOROURACIL [Suspect]
     Active Substance: FLUOROURACIL
     Dosage: 2400 MG/M2 (2748ML)
  12. FLUOROURACIL [Suspect]
     Active Substance: FLUOROURACIL
     Dosage: 750 MG (400 MG/M2) BOLUS
     Dates: start: 20201218, end: 20201220
  13. FLUOROURACIL [Suspect]
     Active Substance: FLUOROURACIL
     Dosage: 4488 MG (2400 MG/M2) INFUSION
     Dates: start: 20201218, end: 20201220
  14. FLUOROURACIL [Suspect]
     Active Substance: FLUOROURACIL
     Dosage: 3280MG(1900MG/M2) INFUSION
     Dates: start: 20210108, end: 20210110
  15. HUMULIN R [Concomitant]
     Active Substance: INSULIN HUMAN
     Indication: Diabetes mellitus
     Dosage: 10 IU, QD
     Route: 058
     Dates: start: 20201205
  16. DIMETHICONE\PANCRELIPASE\URSODIOL [Concomitant]
     Active Substance: DIMETHICONE\PANCRELIPASE\URSODIOL
     Indication: Prophylaxis
     Dosage: 1 DF, QD
     Route: 048
     Dates: start: 20190928
  17. URSODIOL [Concomitant]
     Active Substance: URSODIOL
     Indication: Prophylaxis
     Dosage: 200 MG, QD
     Route: 048
     Dates: start: 20190928
  18. EUGLEX [Concomitant]
     Indication: Diabetes mellitus
     Dosage: 2 MG, QD
     Route: 048
     Dates: start: 20210122
  19. LAMINA-G SOLN [Concomitant]
     Indication: Prophylaxis
     Dosage: 20 ML, QD
     Route: 048
     Dates: start: 20210108

REACTIONS (4)
  - Cholangitis [Recovered/Resolved]
  - Diarrhoea [Recovered/Resolved]
  - Vomiting [Recovered/Resolved]
  - Off label use [Unknown]

NARRATIVE: CASE EVENT DATE: 20201203
